FAERS Safety Report 8728207 (Version 2)
Quarter: 2012Q4

REPORT INFORMATION
  Report Type: 
  Country: HU (occurrence: HU)
  Receive Date: 20120817
  Receipt Date: 20120910
  Transmission Date: 20130627
  Serious: Yes (Hospitalization)
  Sender: FDA-Public Use
  Company Number: HU-AMGEN-HUNSP2012050976

PATIENT
  Age: 17 Year
  Sex: Male

DRUGS (1)
  1. NEUPOGEN [Suspect]
     Indication: AUTOIMMUNE NEUTROPENIA
     Dosage: 5 mug/kg, UNK
     Route: 058

REACTIONS (3)
  - Cytokine release syndrome [Unknown]
  - Pyrexia [Unknown]
  - Chills [Unknown]
